FAERS Safety Report 8107248-3 (Version None)
Quarter: 2012Q1

REPORT INFORMATION
  Report Type: 
  Country: None (occurrence: None)
  Receive Date: 20120202
  Receipt Date: 20120130
  Transmission Date: 20120608
  Serious: Yes (Other)
  Sender: FDA-Public Use
  Company Number: US-SANOFI-AVENTIS-2011SA079569

PATIENT
  Age: 42 Year
  Sex: Male

DRUGS (9)
  1. AVAPRO [Concomitant]
     Indication: DIABETIC COMPLICATION
  2. ALCOHOL [Suspect]
  3. SERTRALINE HYDROCHLORIDE [Concomitant]
     Indication: DEPRESSION
  4. LANTUS [Concomitant]
     Dosage: DOSE:30 UNIT(S)
  5. AMBIEN [Suspect]
     Dates: end: 20111130
  6. TESTOSTERONE [Concomitant]
  7. HUMALOG [Concomitant]
     Dosage: 25-30 UNITS
  8. XANAX [Suspect]
  9. APIDRA [Concomitant]
     Dosage: 25-30 UNITS

REACTIONS (4)
  - SOMNAMBULISM [None]
  - ABNORMAL SLEEP-RELATED EVENT [None]
  - ROAD TRAFFIC ACCIDENT [None]
  - BLOOD GLUCOSE DECREASED [None]
